FAERS Safety Report 6433740-3 (Version None)
Quarter: 2009Q4

REPORT INFORMATION
  Report Type: 
  Country: None (occurrence: None)
  Receive Date: 20091110
  Receipt Date: 20091105
  Transmission Date: 20100525
  Serious: Yes (Hospitalization)
  Sender: FDA-Public Use
  Company Number: TR-ROXANE LABORATORIES, INC.-2009-RO-01140RO

PATIENT
  Age: 25 Year
  Sex: Male

DRUGS (6)
  1. LITHIUM CARBONATE [Suspect]
     Indication: BIPOLAR DISORDER
     Dosage: 900 MG
  2. LORAZEPAM [Suspect]
     Indication: BIPOLAR DISORDER
  3. OLANZAPINE [Suspect]
     Indication: BIPOLAR DISORDER
     Dosage: 10 MG
  4. CARBAMAZEPINE [Suspect]
     Indication: BIPOLAR DISORDER
  5. METHYLPHENIDATE HCL [Concomitant]
     Indication: ATTENTION DEFICIT/HYPERACTIVITY DISORDER
     Dosage: 10 MG
  6. METHYLPHENIDATE HCL [Concomitant]
     Dosage: 20 MG

REACTIONS (1)
  - DRUG INEFFECTIVE [None]
